FAERS Safety Report 8906417 (Version 1)
Quarter: 2012Q4

REPORT INFORMATION
  Report Type: Spontaneous
  Country: US (occurrence: None)
  Receive Date: 20121112
  Receipt Date: 20121112
  Transmission Date: 20130627
  Serious: Yes (Other)
  Sender: FDA-Public Use
  Company Number: None

PATIENT
  Age: 50 Year
  Sex: Male
  Weight: 92.08 kg

DRUGS (2)
  1. MONTELUKAST [Suspect]
     Indication: ASTHMA
     Route: 048
     Dates: start: 201209
  2. MONTELUKAST [Suspect]
     Indication: ALLERGIC RHINITIS
     Route: 048
     Dates: start: 201209

REACTIONS (2)
  - Product substitution issue [None]
  - Asthma [None]
